FAERS Safety Report 8036754 (Version 3)
Quarter: 2014Q3

REPORT INFORMATION
  Report Type: Report from Study
  Country: DE (occurrence: DE)
  Receive Date: 20110715
  Receipt Date: 20140826
  Transmission Date: 20150326
  Serious: Yes (Life-Threatening, Hospitalization)
  Sender: FDA-Public Use
  Company Number: PHHY2010DE79998

PATIENT
  Age: 54 Year
  Sex: Male
  Weight: 64 kg

DRUGS (6)
  1. RAMIPRIL. [Concomitant]
     Active Substance: RAMIPRIL
     Indication: HYPERTENSION
     Dosage: 1 DF, BID, ONE TABLET IN MORNING , ONE TABLET IN EVENING
     Route: 048
  2. PANTOPRAZOLE [Concomitant]
     Active Substance: PANTOPRAZOLE SODIUM
     Indication: PROPHYLAXIS AGAINST GASTROINTESTINAL ULCER
     Dosage: 1 DF, QD, ONE TABLET IN THE MORNING
     Route: 048
  3. ANTIARRHYTHMICS, CLASS I AND III [Concomitant]
     Active Substance: UNSPECIFIED INGREDIENT
  4. SIMVASTATIN. [Concomitant]
     Active Substance: SIMVASTATIN
     Indication: LIPID METABOLISM DISORDER
     Dosage: 40 MG, UNK
     Route: 048
  5. ILARIS [Suspect]
     Active Substance: CANAKINUMAB
     Indication: CRYOPYRIN ASSOCIATED PERIODIC SYNDROME
     Dosage: 150 MG, ONE INJECTION EVERY 4 WEEKS
     Route: 058
     Dates: start: 20101102
  6. BISOPROLOL [Concomitant]
     Active Substance: BISOPROLOL
     Indication: HYPERTENSION
     Dosage: 1 DF, BID, ONE TABLET IN MORNING , ONE TABLET IN EVENING
     Route: 048

REACTIONS (9)
  - Ventricular fibrillation [Unknown]
  - Coronary artery disease [Recovered/Resolved]
  - Abdominal pain [Recovered/Resolved]
  - Cardiac arrest [Unknown]
  - Febrile infection [Recovered/Resolved]
  - Ventricular tachycardia [Recovered/Resolved]
  - Ventricular dysfunction [Recovered/Resolved]
  - Pericardial effusion [Recovered/Resolved]
  - Palpitations [Unknown]

NARRATIVE: CASE EVENT DATE: 20101113
